FAERS Safety Report 8796781 (Version 6)
Quarter: 2013Q3

REPORT INFORMATION
  Report Type: Spontaneous
  Country: US (occurrence: US)
  Receive Date: 20120919
  Receipt Date: 20130701
  Transmission Date: 20140515
  Serious: Yes (Hospitalization, Disabling, Other)
  Sender: FDA-Public Use
  Company Number: US-009507513-1202USA00867

PATIENT
  Sex: Female

DRUGS (6)
  1. FOSAMAX [Suspect]
     Indication: OSTEOPOROSIS
     Dosage: 10 MG, UNK
     Route: 048
     Dates: start: 199606, end: 200110
  2. FOSAMAX [Suspect]
     Dosage: 70 MG, QW
     Route: 048
     Dates: start: 200110, end: 200501
  3. CALCIUM (UNSPECIFIED) [Concomitant]
     Dosage: 600 MG, UNK
     Dates: start: 1990
  4. LIPITOR [Concomitant]
     Indication: HYPERCHOLESTEROLAEMIA
     Dosage: UNK
     Dates: start: 1995
  5. AMARYL [Concomitant]
     Indication: TYPE 1 DIABETES MELLITUS
     Dosage: UNK
     Dates: start: 1992
  6. BENICAR [Concomitant]
     Indication: CARDIAC DISORDER
     Dosage: UNK
     Dates: start: 1992

REACTIONS (43)
  - Pathological fracture [Not Recovered/Not Resolved]
  - Intramedullary rod insertion [Not Recovered/Not Resolved]
  - Femur fracture [Not Recovered/Not Resolved]
  - Intramedullary rod insertion [Not Recovered/Not Resolved]
  - Cardiac ablation [Unknown]
  - Surgery [Unknown]
  - Mastectomy [Unknown]
  - Cholecystectomy [Unknown]
  - Renal failure chronic [Not Recovered/Not Resolved]
  - Humerus fracture [Unknown]
  - Cardiac failure acute [Unknown]
  - Acute respiratory failure [Unknown]
  - Pancytopenia [Unknown]
  - Lung infiltration [Unknown]
  - Pleural effusion [Unknown]
  - Chronic obstructive pulmonary disease [Unknown]
  - Renal failure acute [Recovering/Resolving]
  - Fall [Unknown]
  - Dental prosthesis placement [Unknown]
  - Ankle fracture [Unknown]
  - Gastrointestinal disorder [Unknown]
  - Hypertension [Unknown]
  - Tendonitis [Unknown]
  - Bursitis [Unknown]
  - Calcification of muscle [Unknown]
  - Cardiac failure [Unknown]
  - Liver disorder [Not Recovered/Not Resolved]
  - Ventricular extrasystoles [Not Recovered/Not Resolved]
  - Ventricular tachycardia [Unknown]
  - Vascular insufficiency [Unknown]
  - Nephrogenic anaemia [Not Recovered/Not Resolved]
  - Diabetic neuropathy [Unknown]
  - Fall [Unknown]
  - Infection [Unknown]
  - Shoulder operation [Unknown]
  - Medical device removal [Unknown]
  - Renal cyst [Unknown]
  - Thrombocytopenia [Unknown]
  - Chronic obstructive pulmonary disease [Not Recovered/Not Resolved]
  - Tonsillectomy [Unknown]
  - Hypoglycaemia [Unknown]
  - Hypovolaemia [Unknown]
  - Unevaluable event [Unknown]
